FAERS Safety Report 11608461 (Version 1)
Quarter: 2015Q4

REPORT INFORMATION
  Report Type: Spontaneous
  Country: US (occurrence: US)
  Receive Date: 20151007
  Receipt Date: 20151007
  Transmission Date: 20160304
  Serious: Yes (Other)
  Sender: FDA-Public Use
  Company Number: US-MYLANLABS-2015M1033740

PATIENT

DRUGS (5)
  1. PREDNISONE. [Suspect]
     Active Substance: PREDNISONE
     Indication: BIRDSHOT CHORIORETINOPATHY
     Route: 065
  2. TRIAMCINOLONE [Concomitant]
     Active Substance: TRIAMCINOLONE
     Indication: BIRDSHOT CHORIORETINOPATHY
     Route: 050
  3. RETISERT [Suspect]
     Active Substance: FLUOCINOLONE ACETONIDE
     Indication: BIRDSHOT CHORIORETINOPATHY
     Dosage: 0.59MG
     Route: 050
  4. MYCOPHENOLATE MOFETIL. [Suspect]
     Active Substance: MYCOPHENOLATE MOFETIL
     Indication: BIRDSHOT CHORIORETINOPATHY
     Route: 065
  5. CICLOSPORIN [Suspect]
     Active Substance: CYCLOSPORINE
     Indication: BIRDSHOT CHORIORETINOPATHY
     Route: 065

REACTIONS (5)
  - Blood creatinine increased [Unknown]
  - Drug intolerance [Unknown]
  - Cataract [Unknown]
  - Blood urea increased [Unknown]
  - Treatment failure [Unknown]
